FAERS Safety Report 5678572-9 (Version None)
Quarter: 2008Q1

REPORT INFORMATION
  Report Type: 
  Country: None (occurrence: None)
  Receive Date: 20080325
  Receipt Date: 20080314
  Transmission Date: 20080703
  Serious: Yes (Hospitalization, Other)
  Sender: FDA-Public Use
  Company Number: PHHY2008JP02021

PATIENT
  Age: 30 Year
  Sex: Female

DRUGS (4)
  1. TEGRETOL [Suspect]
     Indication: SCHIZOPHRENIA
     Dosage: 600 MG/DAY
     Route: 048
     Dates: start: 20070818, end: 20071005
  2. ABILIFY [Concomitant]
     Indication: SCHIZOPHRENIA
     Dosage: 9 MG/DAY
     Route: 048
     Dates: start: 20070818
  3. MEILAX [Concomitant]
     Indication: SCHIZOPHRENIA
     Dosage: 2 MG/DAY
     Route: 048
     Dates: start: 20070818, end: 20071005
  4. LENDORMIN [Concomitant]
     Indication: SCHIZOPHRENIA
     Dosage: 0.25 MG/DAY
     Route: 048
     Dates: start: 20070818, end: 20071005

REACTIONS (16)
  - ALANINE AMINOTRANSFERASE INCREASED [None]
  - ASPARTATE AMINOTRANSFERASE INCREASED [None]
  - BLOOD LACTATE DEHYDROGENASE INCREASED [None]
  - COUGH [None]
  - DRUG RASH WITH EOSINOPHILIA AND SYSTEMIC SYMPTOMS [None]
  - GAMMA-GLUTAMYLTRANSFERASE INCREASED [None]
  - LIVER DISORDER [None]
  - LYMPHADENOPATHY [None]
  - LYMPHOCYTE MORPHOLOGY ABNORMAL [None]
  - LYMPHOCYTE STIMULATION TEST POSITIVE [None]
  - MONOCYTE COUNT DECREASED [None]
  - PHARYNGOLARYNGEAL DISCOMFORT [None]
  - PYREXIA [None]
  - RASH [None]
  - SKIN TEST POSITIVE [None]
  - WHITE BLOOD CELL COUNT DECREASED [None]
